FAERS Safety Report 13362427 (Version 1)
Quarter: 2017Q1

REPORT INFORMATION
  Report Type: Spontaneous
  Country: US (occurrence: US)
  Receive Date: 20170322
  Receipt Date: 20170322
  Transmission Date: 20170429
  Serious: Yes (Disabling, Other)
  Sender: FDA-Public Use
  Company Number: None

PATIENT
  Age: 38 Year
  Sex: Female
  Weight: 52.65 kg

DRUGS (9)
  1. ADAVAN [Concomitant]
     Active Substance: UNSPECIFIED INGREDIENT
  2. VITAMIN D [Concomitant]
     Active Substance: CHOLECALCIFEROL
  3. GABAPENTION [Concomitant]
  4. VITAMIN B12 [Concomitant]
     Active Substance: CYANOCOBALAMIN
  5. SPIROMLACT [Concomitant]
  6. PROBIOTIC [Concomitant]
     Active Substance: PROBIOTICS NOS
  7. CIPROFLAXIN [Suspect]
     Active Substance: CIPROFLOXACIN
     Indication: URINARY TRACT INFECTION
     Dosage: ?          QUANTITY:1 CAPSULE(S);?
     Route: 048
     Dates: start: 20160101, end: 20160104
  8. VITAMINS NOS [Concomitant]
     Active Substance: VITAMINS
  9. CULTURELLE [Concomitant]
     Active Substance: LACTOBACILLUS RHAMNOSUS

REACTIONS (3)
  - Tendon rupture [None]
  - Confusional state [None]
  - Depressed mood [None]

NARRATIVE: CASE EVENT DATE: 20160107
